FAERS Safety Report 9542079 (Version 2)
Quarter: 2013Q4

REPORT INFORMATION
  Report Type: Spontaneous
  Country: SE (occurrence: SE)
  Receive Date: 20130923
  Receipt Date: 20131024
  Transmission Date: 20140711
  Serious: Yes (Other)
  Sender: FDA-Public Use
  Company Number: SE-ASTELLAS-2013EU007877

PATIENT
  Sex: Female

DRUGS (1)
  1. PROGRAF [Suspect]
     Dosage: UNK
     Route: 065

REACTIONS (7)
  - Infection susceptibility increased [Unknown]
  - Nervous system disorder [Unknown]
  - Polyneuropathy [Unknown]
  - Gait disturbance [Unknown]
  - Cognitive disorder [Unknown]
  - Fatigue [Unknown]
  - Muscular weakness [Unknown]
